FAERS Safety Report 16566718 (Version 1)
Quarter: 2019Q3

REPORT INFORMATION
  Report Type: Spontaneous
  Country: US (occurrence: US)
  Receive Date: 20190712
  Receipt Date: 20190712
  Transmission Date: 20191004
  Serious: Yes (Other)
  Sender: FDA-Public Use
  Company Number: US-MYLANLABS-2019M1065105

PATIENT
  Age: 29 Year
  Sex: Female

DRUGS (5)
  1. TOBRAMYCIN. [Suspect]
     Active Substance: TOBRAMYCIN
     Indication: INFECTIVE KERATITIS
     Dosage: DOSAGE STRENGTH: 14MG/ML
     Route: 065
  2. VITAMIN C [Concomitant]
     Active Substance: ASCORBIC ACID
     Indication: INFECTIVE KERATITIS
     Dosage: CONTINUED AFTER RIBOFLAVIN PHOTODYNAMIC ANTIMICROBIAL THERAPY, ALONGSIDE DOXYCYCLINE, MOXIFLOXACI...
     Route: 065
  3. PREDNISOLONE ACETATE. [Concomitant]
     Active Substance: PREDNISOLONE ACETATE
     Indication: INFECTIVE KERATITIS
     Dosage: CONTINUED AFTER RIBOFLAVIN PHOTODYNAMIC ANTIMICROBIAL THERAPY, ALONGSIDE DOXYCYCLINE, MOXIFLOXACI...
     Route: 065
  4. MOXIFLOXACIN. [Suspect]
     Active Substance: MOXIFLOXACIN
     Indication: INFECTIVE KERATITIS
     Dosage: CONTINUED AFTER RIBOFLAVIN PHOTODYNAMIC ANTIMICROBIAL THERAPY, ALONGSIDE DOXYCYCLINE, ASCORBIC AC...
     Route: 061
  5. DOXYCYCLINE. [Suspect]
     Active Substance: DOXYCYCLINE
     Indication: INFECTIVE KERATITIS
     Dosage: CONTINUED AFTER RIBOFLAVIN PHOTODYNAMIC ANTIMICROBIAL THERAPY, ALONGSIDE MOXIFLOXACIN, ASCORBIC A...
     Route: 048

REACTIONS (1)
  - Drug ineffective [Unknown]
